FAERS Safety Report 5993760-X (Version None)
Quarter: 2008Q4

REPORT INFORMATION
  Report Type: 
  Country: None (occurrence: None)
  Receive Date: 20081212
  Receipt Date: 20081202
  Transmission Date: 20090506
  Serious: Yes (Other)
  Sender: FDA-Public Use
  Company Number: US-AMGEN-QUU320028

PATIENT
  Sex: Female

DRUGS (1)
  1. ENBREL [Suspect]
     Indication: JUVENILE ARTHRITIS
     Route: 030

REACTIONS (4)
  - CAPILLARITIS [None]
  - FOLLICULITIS [None]
  - VIRAL SKIN INFECTION [None]
  - VIRAL UPPER RESPIRATORY TRACT INFECTION [None]
